FAERS Safety Report 16162035 (Version 1)
Quarter: 2019Q2

REPORT INFORMATION
  Report Type: Spontaneous
  Country: None (occurrence: US)
  Receive Date: 20190405
  Receipt Date: 20190405
  Transmission Date: 20190711
  Serious: No
  Sender: FDA-Public Use
  Company Number: US-MIKART, INC.-2065355

PATIENT
  Sex: Female

DRUGS (2)
  1. HUMIRA [Concomitant]
     Active Substance: ADALIMUMAB
  2. HYDROCODONE BITARTRATE AND ACETAMINOPHEN [Suspect]
     Active Substance: ACETAMINOPHEN\HYDROCODONE BITARTRATE
     Route: 048

REACTIONS (1)
  - Nausea [Unknown]
